FAERS Safety Report 11061528 (Version 3)
Quarter: 2015Q3

REPORT INFORMATION
  Report Type: Report from Study
  Country: FR (occurrence: FR)
  Receive Date: 20150424
  Receipt Date: 20150706
  Transmission Date: 20151125
  Serious: Yes (Hospitalization)
  Sender: FDA-Public Use
  Company Number: FR-ROCHE-1556994

PATIENT
  Age: 51 Year
  Sex: Female
  Weight: 88 kg

DRUGS (6)
  1. CYCLOPHOSPHAMIDE. [Suspect]
     Active Substance: CYCLOPHOSPHAMIDE
     Indication: DIFFUSE LARGE B-CELL LYMPHOMA
     Dosage: DOSE, FREQUENCY, FORM AND ROUTE OF ADMINISTRATION AS PER PROTOCOL
     Route: 042
     Dates: start: 20150120, end: 20150310
  2. DOXORUBICIN [Suspect]
     Active Substance: DOXORUBICIN
     Indication: DIFFUSE LARGE B-CELL LYMPHOMA
     Dosage: DOSE, FREQUENCY, FORM AND ROUTE OF ADMINISTRATION AS PER PROTOCOL
     Route: 042
     Dates: start: 20150120, end: 20150310
  3. OBINUTUZUMAB [Suspect]
     Active Substance: OBINUTUZUMAB
     Indication: DIFFUSE LARGE B-CELL LYMPHOMA
     Dosage: ADMINISTERED ON DAY 1 (AND DAY 8 FOR CYCLE 1 AND 2)?LAST DOSE PRIOR TO SAE: 06/MAR/2015.
     Route: 042
     Dates: start: 20150120
  4. VINDESINE [Suspect]
     Active Substance: VINDESINE
     Indication: DIFFUSE LARGE B-CELL LYMPHOMA
     Dosage: DOSE, FREQUENCY, FORM AND ROUTE OF ADMINISTRATION AS PER PROTOCOL
     Route: 042
     Dates: start: 20150120, end: 20150310
  5. BLEOMYCIN [Suspect]
     Active Substance: BLEOMYCIN SULFATE
     Indication: DIFFUSE LARGE B-CELL LYMPHOMA
     Dosage: DOSE, FREQUENCY, FORM AND ROUTE OF ADMINISTRATION AS PER PROTOCOL
     Route: 042
     Dates: start: 20150120, end: 20150310
  6. PREDNISONE. [Suspect]
     Active Substance: PREDNISONE
     Indication: DIFFUSE LARGE B-CELL LYMPHOMA
     Dosage: DOSE, FREQUENCY, FORM AND ROUTE OF ADMINISTRATION AS PER PROTOCOL
     Route: 042
     Dates: start: 20150120, end: 20150310

REACTIONS (1)
  - Lung infection [Recovered/Resolved]

NARRATIVE: CASE EVENT DATE: 20150315
